FAERS Safety Report 25083408 (Version 1)
Quarter: 2025Q1

REPORT INFORMATION
  Report Type: Spontaneous
  Country: US (occurrence: US)
  Receive Date: 20250317
  Receipt Date: 20250317
  Transmission Date: 20250408
  Serious: No
  Sender: GE HEALTHCARE
  Company Number: US-GE HEALTHCARE-2025CSU003072

PATIENT
  Age: 72 Year
  Sex: Female
  Weight: 71 kg

DRUGS (1)
  1. VIZAMYL [Suspect]
     Active Substance: FLUTEMETAMOL F-18
     Indication: Positron emission tomogram
     Route: 042
     Dates: start: 20250312

REACTIONS (2)
  - Burning sensation [Recovered/Resolved]
  - Flushing [Recovered/Resolved]

NARRATIVE: CASE EVENT DATE: 20250312
